FAERS Safety Report 21519812 (Version 1)
Quarter: 2022Q4

REPORT INFORMATION
  Report Type: Spontaneous
  Country: US (occurrence: None)
  Receive Date: 20221027
  Receipt Date: 20221027
  Transmission Date: 20230113
  Serious: No
  Sender: FDA-Public Use
  Company Number: None

PATIENT
  Sex: Male

DRUGS (1)
  1. STELARA [Suspect]
     Active Substance: USTEKINUMAB
     Indication: Rheumatoid arthritis
     Dosage: OTHER QUANTITY : 45MG/.5ML;?OTHER FREQUENCY : EVERY 12 WKS;?
     Route: 058
     Dates: start: 20201117

REACTIONS (2)
  - Joint swelling [None]
  - Arthralgia [None]
